FAERS Safety Report 16703759 (Version 5)
Quarter: 2019Q4

REPORT INFORMATION
  Report Type: Spontaneous
  Country: US (occurrence: US)
  Receive Date: 20190814
  Receipt Date: 20191204
  Transmission Date: 20200122
  Serious: No
  Sender: FDA-Public Use
  Company Number: US-PFIZER INC-2019345988

PATIENT
  Age: 80 Year
  Sex: Female

DRUGS (5)
  1. DETROL [Suspect]
     Active Substance: TOLTERODINE TARTRATE
     Indication: IRRITABLE BOWEL SYNDROME
  2. DETROL LA [Suspect]
     Active Substance: TOLTERODINE TARTRATE
     Indication: IRRITABLE BOWEL SYNDROME
     Dosage: 4 MG, UNK
     Route: 048
  3. DETROL LA [Suspect]
     Active Substance: TOLTERODINE TARTRATE
     Dosage: UNK, 1X/DAY
  4. DETROL LA [Suspect]
     Active Substance: TOLTERODINE TARTRATE
     Indication: INCONTINENCE
     Dosage: 2 MG, UNK
     Route: 048
  5. DETROL [Suspect]
     Active Substance: TOLTERODINE TARTRATE
     Indication: INCONTINENCE
     Dosage: UNK UNK, 1X/DAY (1 A DAY)

REACTIONS (1)
  - Drug ineffective [Not Recovered/Not Resolved]
